FAERS Safety Report 16483411 (Version 2)
Quarter: 2019Q3

REPORT INFORMATION
  Report Type: Report from Study
  Country: CA (occurrence: CA)
  Receive Date: 20190627
  Receipt Date: 20190702
  Transmission Date: 20191004
  Serious: Yes (Other)
  Sender: FDA-Public Use
  Company Number: CA-JNJFOC-20190619705

PATIENT
  Age: 40 Year
  Sex: Female
  Weight: 79.38 kg

DRUGS (1)
  1. GOLIMUMAB SOLUTION FOR INJECTION [Suspect]
     Active Substance: GOLIMUMAB
     Indication: COLITIS ULCERATIVE
     Dosage: STRENGTH 100 MG
     Route: 058
     Dates: start: 20170721, end: 20190614

REACTIONS (4)
  - Therapeutic response decreased [Unknown]
  - Psoriasis [Unknown]
  - Small intestinal obstruction [Recovered/Resolved]
  - Gastrointestinal inflammation [Unknown]

NARRATIVE: CASE EVENT DATE: 20190609
